FAERS Safety Report 19687348 (Version 1)
Quarter: 2021Q3

REPORT INFORMATION
  Report Type: Report from Study
  Country: None (occurrence: US)
  Receive Date: 20210812
  Receipt Date: 20210812
  Transmission Date: 20211014
  Serious: Yes (Other)
  Sender: FDA-Public Use
  Company Number: US-ABBVIE-21K-163-4027387-00

PATIENT
  Sex: Female

DRUGS (1)
  1. HUMIRA [Suspect]
     Active Substance: ADALIMUMAB
     Indication: CROHN^S DISEASE
     Route: 058
     Dates: start: 20210430, end: 20210615

REACTIONS (9)
  - Post procedural discomfort [Recovering/Resolving]
  - Oedema peripheral [Recovered/Resolved]
  - Pancreatitis [Unknown]
  - Rash [Recovered/Resolved]
  - Procedural pain [Recovering/Resolving]
  - Diarrhoea [Recovering/Resolving]
  - Biliary obstruction [Unknown]
  - Weight decreased [Recovering/Resolving]
  - Anorectal discomfort [Recovering/Resolving]

NARRATIVE: CASE EVENT DATE: 2021
